FAERS Safety Report 7001474-2 (Version None)
Quarter: 2010Q3

REPORT INFORMATION
  Report Type: 
  Country: None (occurrence: None)
  Receive Date: 20100920
  Receipt Date: 20100121
  Transmission Date: 20110219
  Serious: No
  Sender: FDA-Public Use
  Company Number: US-ASTRAZENECA-2010SE03007

PATIENT
  Sex: Female

DRUGS (1)
  1. SEROQUEL XR [Suspect]
     Route: 048
     Dates: start: 20090101

REACTIONS (5)
  - INCREASED APPETITE [None]
  - LIP SWELLING [None]
  - OEDEMA PERIPHERAL [None]
  - POLLAKIURIA [None]
  - SWELLING FACE [None]
